FAERS Safety Report 9741389 (Version 1)
Quarter: 2013Q4

REPORT INFORMATION
  Report Type: Spontaneous
  Country: BR (occurrence: BR)
  Receive Date: 20131209
  Receipt Date: 20131209
  Transmission Date: 20140711
  Serious: Yes (Other)
  Sender: FDA-Public Use
  Company Number: BR-ELI_LILLY_AND_COMPANY-BR201311009340

PATIENT
  Sex: Female

DRUGS (5)
  1. HUMULIN N [Suspect]
     Indication: DIABETES MELLITUS
     Dosage: 34 IU, EACH MORNING
     Route: 058
  2. HUMULIN N [Suspect]
     Dosage: 18 IU, EACH EVENING
     Route: 058
  3. LOSARTAN [Concomitant]
     Indication: BLOOD PRESSURE
     Dosage: 50 MG, BID
     Route: 065
  4. METFORMIN [Concomitant]
     Indication: PRODUCT USED FOR UNKNOWN INDICATION
     Dosage: 1000 MG, BID
     Route: 065
  5. AAS [Concomitant]
     Indication: PRODUCT USED FOR UNKNOWN INDICATION
     Dosage: UNK, UNKNOWN
     Route: 065

REACTIONS (7)
  - Retinal injury [Unknown]
  - Injection site haematoma [Recovered/Resolved]
  - Injection site mass [Unknown]
  - Injection site induration [Unknown]
  - Varicose vein [Unknown]
  - Vision blurred [Unknown]
  - Visual impairment [Unknown]
